FAERS Safety Report 23453569 (Version 1)
Quarter: 2024Q1

REPORT INFORMATION
  Report Type: Spontaneous
  Country: MX (occurrence: MX)
  Receive Date: 20240129
  Receipt Date: 20240129
  Transmission Date: 20240410
  Serious: Yes (Other)
  Sender: FDA-Public Use
  Company Number: MX-ELI_LILLY_AND_COMPANY-MX202401010667

PATIENT
  Age: 56 Year
  Sex: Male

DRUGS (1)
  1. OLUMIANT [Suspect]
     Active Substance: BARICITINIB
     Indication: Rheumatoid arthritis
     Dosage: 4 MG, UNKNOWN
     Route: 065
     Dates: start: 2022

REACTIONS (5)
  - Syncope [Unknown]
  - Head injury [Unknown]
  - Loss of consciousness [Unknown]
  - Syncope [Unknown]
  - Weight increased [Unknown]

NARRATIVE: CASE EVENT DATE: 20230201
